FAERS Safety Report 4368060-4 (Version None)
Quarter: 2004Q2

REPORT INFORMATION
  Report Type: 
  Country: None (occurrence: None)
  Receive Date: 20040527
  Receipt Date: 20040209
  Transmission Date: 20050107
  Serious: No
  Sender: FDA-Public Use
  Company Number: 204654

PATIENT
  Sex: Male

DRUGS (2)
  1. RAPTIVA [Suspect]
     Indication: PSORIASIS
     Dosage: 0.6 MG/KG, SINGLE, SUBCUTANEOUS; 0.8 MG/KG, SNIGLE, SUBCUTANEOUS
     Route: 058
     Dates: start: 20040101
  2. RAPTIVA [Suspect]
     Indication: PSORIASIS
     Dosage: 0.6 MG/KG, SINGLE, SUBCUTANEOUS; 0.8 MG/KG, SNIGLE, SUBCUTANEOUS
     Route: 058
     Dates: start: 20040201

REACTIONS (1)
  - HEADACHE [None]
